FAERS Safety Report 21340076 (Version 1)
Quarter: 2022Q3

REPORT INFORMATION
  Report Type: Report from Study
  Country: US (occurrence: US)
  Receive Date: 20220915
  Receipt Date: 20220915
  Transmission Date: 20221026
  Serious: Yes (Hospitalization)
  Sender: FDA-Public Use
  Company Number: US-JNJFOC-20220836156

PATIENT
  Age: 68 Year
  Sex: Female

DRUGS (2)
  1. MACITENTAN [Suspect]
     Active Substance: MACITENTAN
     Indication: Pulmonary arterial hypertension
     Route: 048
     Dates: start: 20220813, end: 20220830
  2. SELEXIPAG [Suspect]
     Active Substance: SELEXIPAG
     Indication: Pulmonary arterial hypertension
     Dosage: 30TH OR 31ST AUG-2022-- START DATE
     Route: 048
     Dates: start: 202208

REACTIONS (8)
  - Weight increased [Recovered/Resolved]
  - Confusional state [Recovered/Resolved]
  - Myalgia [Recovered/Resolved]
  - Red blood cell count decreased [Recovered/Resolved]
  - Headache [Recovered/Resolved]
  - Dyspnoea [Recovering/Resolving]
  - Nausea [Recovered/Resolved]
  - Abdominal pain upper [Recovered/Resolved]

NARRATIVE: CASE EVENT DATE: 20220829
